FAERS Safety Report 5994532-2 (Version None)
Quarter: 2008Q4

REPORT INFORMATION
  Report Type: 
  Country: None (occurrence: None)
  Receive Date: 20081212
  Receipt Date: 20081203
  Transmission Date: 20090506
  Serious: Yes (Hospitalization)
  Sender: FDA-Public Use
  Company Number: DE-MERCK-0810DEU00097

PATIENT
  Age: 35 Year
  Sex: Female

DRUGS (4)
  1. JANUVIA [Suspect]
     Indication: TYPE 2 DIABETES MELLITUS
     Route: 048
     Dates: start: 20081020, end: 20081027
  2. METFORMIN [Concomitant]
     Route: 048
     Dates: start: 20081020, end: 20081027
  3. MESALAMINE [Concomitant]
     Indication: CROHN'S DISEASE
     Route: 065
     Dates: start: 20070101
  4. HORMONAL CONTRACEPTIVES (UNSPECIFIED) [Concomitant]
     Route: 065

REACTIONS (1)
  - AUTOIMMUNE HEPATITIS [None]
